FAERS Safety Report 21627043 (Version 1)
Quarter: 2022Q4

REPORT INFORMATION
  Report Type: Report from Study
  Country: US (occurrence: US)
  Receive Date: 20221122
  Receipt Date: 20221122
  Transmission Date: 20230112
  Serious: Yes (Other)
  Sender: FDA-Public Use
  Company Number: US-BEH-2022152059

PATIENT
  Age: 40 Year

DRUGS (1)
  1. HAEGARDA [Suspect]
     Active Substance: HUMAN C1-ESTERASE INHIBITOR
     Indication: Prophylaxis
     Dosage: 6000 INTERNATIONAL UNIT, EVERY 4-5 DAYS
     Route: 058
     Dates: start: 2019

REACTIONS (6)
  - Hereditary angioedema [Recovered/Resolved]
  - Product dose omission in error [Recovered/Resolved]
  - Hereditary angioedema [Recovered/Resolved]
  - Product dose omission in error [Recovered/Resolved]
  - Hereditary angioedema [Recovered/Resolved]
  - Product dose omission in error [Recovered/Resolved]
